FAERS Safety Report 4649881-7 (Version None)
Quarter: 2005Q2

REPORT INFORMATION
  Report Type: 
  Country: None (occurrence: None)
  Receive Date: 20050428
  Receipt Date: 20050419
  Transmission Date: 20051028
  Serious: Yes (Life-Threatening)
  Sender: FDA-Public Use
  Company Number: 2005061185

PATIENT
  Age: 34 Year
  Sex: Female

DRUGS (3)
  1. NORVASC [Suspect]
     Indication: HYPERTENSION
     Dosage: 10 MG, ORAL
     Route: 048
     Dates: end: 20041123
  2. SULFASALAZINE [Concomitant]
  3. HYDROXYCHLOROQUINE SULFATE [Suspect]

REACTIONS (3)
  - BLOOD CREATINE PHOSPHOKINASE INCREASED [None]
  - PERIORBITAL OEDEMA [None]
  - RENAL FAILURE ACUTE [None]
